FAERS Safety Report 4850814-9 (Version None)
Quarter: 2005Q4

REPORT INFORMATION
  Report Type: 
  Country: None (occurrence: None)
  Receive Date: 20051208
  Receipt Date: 20051129
  Transmission Date: 20060501
  Serious: Yes (Disabling, Other)
  Sender: FDA-Public Use
  Company Number: 2005162498

PATIENT
  Sex: Male
  Weight: 104.3273 kg

DRUGS (2)
  1. VIAGRA [Suspect]
     Indication: ERECTILE DYSFUNCTION
     Dosage: (50 MG, PRN), ORAL
     Route: 048
     Dates: start: 20010101, end: 20010101
  2. BETA BLOCKING AGENTS (BETA BLOCKING AGENTS) [Concomitant]

REACTIONS (3)
  - ERYTHEMA [None]
  - RETINAL DETACHMENT [None]
  - VISION BLURRED [None]
